FAERS Safety Report 6961509-X (Version None)
Quarter: 2010Q3

REPORT INFORMATION
  Report Type: 
  Country: None (occurrence: None)
  Receive Date: 20100901
  Receipt Date: 20100830
  Transmission Date: 20110219
  Serious: Yes (Hospitalization)
  Sender: FDA-Public Use
  Company Number: DE-WYE-G06596510

PATIENT
  Sex: Male
  Weight: 65 kg

DRUGS (13)
  1. TORISEL [Suspect]
     Indication: MANTLE CELL LYMPHOMA
     Dosage: SINGLE DOSE 25 MG, DOSE SCHEME ACCORDING TO STUDY PROTOCOL
     Route: 042
     Dates: start: 20100729, end: 20100826
  2. RITUXIMAB [Suspect]
     Indication: MANTLE CELL LYMPHOMA
     Dosage: SINGLE DOSE 675 MG, DOSE SCHEME ACCORDING TO STUDY PROTOCOL
     Dates: start: 20100727, end: 20100824
  3. ENALAPRIL MALEATE [Concomitant]
     Indication: HYPERTENSION
     Route: 048
     Dates: start: 20000101
  4. SIMVASTATIN [Concomitant]
     Indication: HYPERCHOLESTEROLAEMIA
     Route: 048
     Dates: start: 20030101
  5. BISOPROLOL FUMARATE [Concomitant]
     Indication: HYPERTENSION
     Route: 048
     Dates: start: 20000101
  6. PANTOPRAZOLE SODIUM [Concomitant]
     Indication: PREMEDICATION
     Route: 048
     Dates: start: 20100728
  7. ACETAMINOPHEN [Concomitant]
     Indication: PREMEDICATION
     Route: 048
     Dates: start: 20100727
  8. CETIRIZINE HCL [Concomitant]
     Indication: PREMEDICATION
     Route: 048
     Dates: start: 20100727
  9. ZYLORIC [Concomitant]
     Indication: PREMEDICATION
     Route: 048
     Dates: start: 20070727
  10. FENISTIL [Concomitant]
     Indication: PREMEDICATION
     Dosage: 4 MG PRIOR TO TORISEL ADMINISTRATION
     Route: 042
     Dates: start: 20100729
  11. KEVATRIL [Concomitant]
     Indication: PREMEDICATION
     Dosage: UNKNOWN
     Route: 042
     Dates: start: 20100728
  12. BENDAMUSTINE [Suspect]
     Indication: MANTLE CELL LYMPHOMA
     Dosage: SINGE DOSE 162 MG, DOSE SCHEME ACCORDING TO STUDY PROTOCOL
     Dates: start: 20100728, end: 20100826
  13. ASPIRIN [Concomitant]
     Indication: PROPHYLAXIS
     Route: 048
     Dates: start: 20000101

REACTIONS (3)
  - HYPERTENSIVE CRISIS [None]
  - INFUSION RELATED REACTION [None]
  - PULMONARY OEDEMA [None]
